FAERS Safety Report 23217524 (Version 5)
Quarter: 2024Q2

REPORT INFORMATION
  Report Type: Other
  Country: ES (occurrence: None)
  Receive Date: 20231122
  Receipt Date: 20240412
  Transmission Date: 20240715
  Serious: No
  Sender: FDA-Public Use
  Company Number: ES-ROCHE-3460630

PATIENT
  Age: 37 Year
  Sex: Female

DRUGS (14)
  1. OCRELIZUMAB [Suspect]
     Active Substance: OCRELIZUMAB
     Indication: Relapsing-remitting multiple sclerosis
     Route: 042
     Dates: start: 20200309, end: 20200323
  2. OCRELIZUMAB [Suspect]
     Active Substance: OCRELIZUMAB
     Route: 042
     Dates: start: 20210325, end: 20210325
  3. OCRELIZUMAB [Suspect]
     Active Substance: OCRELIZUMAB
     Route: 042
     Dates: start: 20210921, end: 20210921
  4. OCRELIZUMAB [Suspect]
     Active Substance: OCRELIZUMAB
     Route: 042
     Dates: start: 20200924, end: 20200924
  5. OCRELIZUMAB [Suspect]
     Active Substance: OCRELIZUMAB
     Route: 042
     Dates: start: 20220323, end: 20220323
  6. OCRELIZUMAB [Suspect]
     Active Substance: OCRELIZUMAB
     Route: 042
     Dates: start: 20230321, end: 20230321
  7. OCRELIZUMAB [Suspect]
     Active Substance: OCRELIZUMAB
     Route: 042
     Dates: start: 20220921, end: 20220921
  8. OCRELIZUMAB [Suspect]
     Active Substance: OCRELIZUMAB
     Dosage: SUBSEQUENT DOSE ON 21-MAR-2024
     Route: 042
     Dates: start: 20230921, end: 20230921
  9. DRONABINOL [Concomitant]
     Active Substance: DRONABINOL
     Dosage: BID
     Route: 048
     Dates: start: 20210527
  10. CANNABIDIOL [Concomitant]
     Active Substance: CANNABIDIOL
     Dosage: BID
     Route: 048
     Dates: start: 20210527
  11. BACLOFEN [Concomitant]
     Active Substance: BACLOFEN
     Dosage: TID
     Route: 048
     Dates: start: 20220113
  12. DESVENLAFAXINE [Concomitant]
     Active Substance: DESVENLAFAXINE
     Route: 048
     Dates: start: 20220113
  13. CALCIFEDIOL [Concomitant]
     Active Substance: CALCIFEDIOL
     Route: 048
     Dates: start: 20230403
  14. CLORAZEPATE DIPOTASSIUM [Concomitant]
     Active Substance: CLORAZEPATE DIPOTASSIUM
     Route: 048
     Dates: start: 20210826

REACTIONS (1)
  - COVID-19 [Recovered/Resolved]

NARRATIVE: CASE EVENT DATE: 20230518
